FAERS Safety Report 6026961-5 (Version None)
Quarter: 2009Q1

REPORT INFORMATION
  Report Type: 
  Country: None (occurrence: None)
  Receive Date: 20090105
  Receipt Date: 20081226
  Transmission Date: 20090719
  Serious: Yes (Other)
  Sender: FDA-Public Use
  Company Number: PHHY2008JP26098

PATIENT

DRUGS (1)
  1. PARLODEL [Suspect]
     Dosage: UNK
     Route: 048

REACTIONS (2)
  - ANAEMIA [None]
  - PANCYTOPENIA [None]
